FAERS Safety Report 25247310 (Version 3)
Quarter: 2025Q2

REPORT INFORMATION
  Report Type: Spontaneous
  Country: JP (occurrence: JP)
  Receive Date: 20250428
  Receipt Date: 20250612
  Transmission Date: 20250716
  Serious: Yes (Hospitalization)
  Sender: MERCK SHARP & DOHME LLC
  Company Number: JP-009507513-2264645

PATIENT
  Age: 5 Decade
  Sex: Female

DRUGS (4)
  1. KEYTRUDA [Suspect]
     Active Substance: PEMBROLIZUMAB
     Indication: Uterine cancer
     Dosage: 200 MG, ONCE EVERY 3 WEEKS
     Route: 041
     Dates: start: 20250228, end: 20250228
  2. KEYTRUDA [Suspect]
     Active Substance: PEMBROLIZUMAB
     Indication: Uterine cancer
     Dosage: 200 MG, ONCE EVERY 3 WEEKS
     Route: 041
     Dates: start: 202505
  3. PACLITAXEL [Concomitant]
     Active Substance: PACLITAXEL
     Indication: Uterine cancer
     Dosage: 175MG/M2, ONCE EVERY 3 WEEKS
     Route: 065
     Dates: start: 20250228
  4. CARBOPLATIN [Concomitant]
     Active Substance: CARBOPLATIN
     Indication: Uterine cancer
     Dosage: AREA UNDER THE CURVE (AUC) 5, ONCE EVERY 3 WEEKS
     Route: 065
     Dates: start: 20250228

REACTIONS (3)
  - Erythema multiforme [Recovered/Resolved]
  - Urticaria [Recovered/Resolved]
  - Pyrexia [Recovered/Resolved]

NARRATIVE: CASE EVENT DATE: 20250301
